FAERS Safety Report 4473984-3 (Version None)
Quarter: 2004Q4

REPORT INFORMATION
  Report Type: 
  Country: None (occurrence: None)
  Receive Date: 20041014
  Receipt Date: 20041007
  Transmission Date: 20050328
  Serious: Yes (Disabling)
  Sender: FDA-Public Use
  Company Number: PHBS2004MX13326

PATIENT
  Sex: Female

DRUGS (3)
  1. CLOZAPINE [Suspect]
     Indication: MEDICATION ERROR
     Dosage: 50 MG, ONCE/SINGLE
     Route: 048
     Dates: start: 20041003, end: 20041003
  2. CAPTOPRIL [Concomitant]
     Indication: HYPERTENSION
     Route: 048
  3. VITAMIN A [Concomitant]
     Dosage: UNK, UNK
     Route: 048

REACTIONS (7)
  - ACCIDENTAL EXPOSURE [None]
  - DIPLOPIA [None]
  - DIZZINESS [None]
  - DYSPNOEA [None]
  - HYPERSOMNIA [None]
  - PARALYSIS [None]
  - SOMNOLENCE [None]
